FAERS Safety Report 9825517 (Version 1)
Quarter: 2014Q1

REPORT INFORMATION
  Report Type: Spontaneous
  Country: US (occurrence: US)
  Receive Date: 20140117
  Receipt Date: 20140117
  Transmission Date: 20141002
  Serious: No
  Sender: FDA-Public Use
  Company Number: US-PFIZER INC-2014011628

PATIENT
  Age: 49 Year
  Sex: Female
  Weight: 64.85 kg

DRUGS (3)
  1. REVATIO [Suspect]
     Indication: SCLERODERMA
     Dosage: 20 MG, 2X/DAY ^IN SUMMERS^
     Dates: start: 2007, end: 2007
  2. REVATIO [Suspect]
     Indication: SYSTEMIC LUPUS ERYTHEMATOSUS
     Dosage: 20 MG, 3X/DAY ^IN WINTERS^
     Dates: start: 2007
  3. NEXIUM [Concomitant]
     Indication: GASTROOESOPHAGEAL REFLUX DISEASE
     Dosage: 40 MG, 1X/DAY

REACTIONS (4)
  - Diarrhoea [Unknown]
  - Fatigue [Unknown]
  - Abdominal pain upper [Unknown]
  - Off label use [Unknown]
